FAERS Safety Report 18627453 (Version 2)
Quarter: 2021Q1

REPORT INFORMATION
  Report Type: Spontaneous
  Country: HU (occurrence: HU)
  Receive Date: 20201217
  Receipt Date: 20210111
  Transmission Date: 20210419
  Serious: Yes (Death)
  Sender: FDA-Public Use
  Company Number: HU-ROCHE-2734111

PATIENT

DRUGS (19)
  1. MABTHERA [Suspect]
     Active Substance: RITUXIMAB
     Dosage: GIVEN EVERY TWO MONTHS (5 TIMES IN TOTAL)
     Route: 058
  2. MABTHERA [Suspect]
     Active Substance: RITUXIMAB
     Dosage: GIVEN EVERY TWO MONTHS (5 TIMES IN TOTAL)
     Route: 058
  3. BENDAMUSTINE [Suspect]
     Active Substance: BENDAMUSTINE
     Dosage: TREATED WITH 6 CYCLES (CYCLE 4)
     Route: 065
  4. BENDAMUSTINE [Suspect]
     Active Substance: BENDAMUSTINE
     Indication: B-CELL LYMPHOMA
     Dosage: TREATED WITH 6 CYCLES (CYCLE 1)
     Route: 065
  5. BENDAMUSTINE [Suspect]
     Active Substance: BENDAMUSTINE
     Dosage: TREATED WITH 6 CYCLES (CYCLE 2)
     Route: 065
  6. TRUXIMA [Suspect]
     Active Substance: RITUXIMAB-ABBS
     Dosage: 870 MG (375 MG/M2) ON EVERY OCCASION, CYCLIC
     Route: 042
     Dates: start: 20190902
  7. TRUXIMA [Suspect]
     Active Substance: RITUXIMAB-ABBS
     Dosage: 870 MG (375 MG/M2) ON EVERY OCCASION, CYCLIC
     Route: 042
     Dates: start: 20190617
  8. MABTHERA [Suspect]
     Active Substance: RITUXIMAB
     Dosage: GIVEN EVERY TWO MONTHS (5 TIMES IN TOTAL)
     Route: 058
     Dates: start: 20200224
  9. MABTHERA [Suspect]
     Active Substance: RITUXIMAB
     Dosage: 1400 MG (LAST DOSE: 05?OCT?2020)
     Route: 058
  10. BENDAMUSTINE [Suspect]
     Active Substance: BENDAMUSTINE
     Dosage: TREATED WITH 6 CYCLES (CYCLE 5)
     Route: 065
  11. TRUXIMA [Suspect]
     Active Substance: RITUXIMAB-ABBS
     Dosage: 870 MG (375 MG/M2) ON EVERY OCCASION, CYCLIC
     Route: 042
     Dates: start: 20191028
  12. TRUXIMA [Suspect]
     Active Substance: RITUXIMAB-ABBS
     Dosage: 870 MG (375 MG/M2) ON EVERY OCCASION, CYCLIC
     Route: 042
     Dates: start: 20190806
  13. TRUXIMA [Suspect]
     Active Substance: RITUXIMAB-ABBS
     Dosage: 870 MG (375 MG/M2) ON EVERY OCCASION, CYCLIC
     Route: 042
     Dates: start: 20190930
  14. BENDAMUSTINE [Suspect]
     Active Substance: BENDAMUSTINE
     Dosage: TREATED WITH 6 CYCLES (CYCLE 6)
     Route: 065
  15. TRUXIMA [Suspect]
     Active Substance: RITUXIMAB-ABBS
     Indication: B-CELL LYMPHOMA
     Dosage: 870 MG (375 MG/M2) ON EVERY OCCASION, CYCLIC
     Route: 042
     Dates: start: 20190708
  16. MABTHERA [Suspect]
     Active Substance: RITUXIMAB
     Indication: B-CELL LYMPHOMA
     Dosage: GIVEN EVERY TWO MONTHS (5 TIMES IN TOTAL)
     Route: 058
  17. MABTHERA [Suspect]
     Active Substance: RITUXIMAB
     Dosage: GIVEN EVERY TWO MONTHS (5 TIMES IN TOTAL)
     Route: 058
  18. BENDAMUSTINE [Suspect]
     Active Substance: BENDAMUSTINE
     Dosage: TREATED WITH 6 CYCLES (CYCLE 3)
     Route: 065
  19. TRUXIMA [Suspect]
     Active Substance: RITUXIMAB-ABBS
     Dosage: 870 MG (375 MG/M2) SINGLE?TIME TREATMENT
     Route: 042
     Dates: start: 20191230, end: 20191230

REACTIONS (1)
  - Progressive multifocal leukoencephalopathy [Fatal]

NARRATIVE: CASE EVENT DATE: 202008
